FAERS Safety Report 6968634 (Version 5)
Quarter: 2015Q1

REPORT INFORMATION
  Report Type: Spontaneous
  Country: IT (occurrence: None)
  Receive Date: 20090402
  Receipt Date: 20150102
  Transmission Date: 20150721
  Serious: Yes (Death)
  Sender: FDA-Public Use
  Company Number: 2009000872

PATIENT
  Age: 53 Year
  Sex: Female

DRUGS (2)
  1. ERLOTINIB HYDROCHLORIDE [Suspect]
     Active Substance: ERLOTINIB HYDROCHLORIDE
     Indication: NON-SMALL CELL LUNG CANCER
     Dosage: 150 MG, QD, ORAL
     Route: 048
     Dates: start: 20090226, end: 20090309
  2. RO 4858696 (IGF-1R ANTAGONIST) RO 4858696 (IGF-1R ANTAGONIST) INFUSION [Concomitant]
     Indication: NON-SMALL CELL LUNG CANCER
     Dosage: 16 MG/KG, Q3W, INTRAVENOUS
     Route: 042
     Dates: start: 20090226, end: 20090309

REACTIONS (1)
  - Dyspnoea [None]

NARRATIVE: CASE EVENT DATE: 20090301
